FAERS Safety Report 9285174 (Version 2)
Quarter: 2013Q2

REPORT INFORMATION
  Report Type: Spontaneous
  Country: FR (occurrence: None)
  Receive Date: 20130507
  Receipt Date: 20130603
  Transmission Date: 20140414
  Serious: Yes (Hospitalization)
  Sender: FDA-Public Use
  Company Number: IND1-FR-2013-0033

PATIENT
  Age: 58 Year
  Sex: Male
  Weight: 117 kg

DRUGS (11)
  1. INDOCID [Suspect]
     Indication: PSORIATIC ARTHROPATHY
     Dosage: 100 MG  (25 MG, 4 IN 1 D)
     Route: 048
     Dates: start: 2000
  2. METHOTREXATE [Suspect]
     Dosage: 1.7857 MG (12.5 MG, 1 IN 1 WK)
     Route: 048
     Dates: start: 2000
  3. METHOTREXATE [Suspect]
     Dosage: 1.7857 MG (12.5 MG, 1 IN 1 WK)
     Route: 048
     Dates: start: 2000
  4. LEDERFOLINE [Suspect]
     Dosage: 0.7143 ML (5 ML, 1 IN 1 WK)
     Route: 048
     Dates: start: 2000
  5. LEDERFOLINE [Suspect]
     Dosage: 0.7143 ML (5 ML, 1 IN 1 WK)
     Route: 048
     Dates: start: 2000
  6. CYTOTEC [Suspect]
     Route: 048
     Dates: start: 2000
  7. ZYLORIC [Suspect]
     Indication: HYPERURICAEMIA
     Route: 048
     Dates: start: 2000
  8. TARKA [Suspect]
     Route: 048
     Dates: start: 201206
  9. STELARA [Suspect]
     Dosage: 1.0714 MG (90 MG, 1 IN 12 WK)
     Route: 051
     Dates: start: 20111022, end: 20120922
  10. STELARA [Suspect]
     Dosage: 1.0714 MG (90 MG, 1 IN 12 WK)
     Route: 051
     Dates: start: 20111022, end: 20120922
  11. STELARA [Suspect]
     Dosage: 1.0714 MG (90 MG, 1 IN 12 WK)
     Route: 051
     Dates: start: 20111022, end: 20120922

REACTIONS (1)
  - Nephrolithiasis [None]
